FAERS Safety Report 8698160 (Version 2)
Quarter: 2013Q3

REPORT INFORMATION
  Report Type: Spontaneous
  Country: US (occurrence: US)
  Receive Date: 20120802
  Receipt Date: 20130725
  Transmission Date: 20140515
  Serious: No
  Sender: FDA-Public Use
  Company Number: US-BIOGENIDEC-2012BI027297

PATIENT
  Age: 64 Year
  Sex: Female

DRUGS (6)
  1. AVONEX [Suspect]
     Indication: MULTIPLE SCLEROSIS
     Route: 030
  2. AVONEX [Suspect]
     Indication: MULTIPLE SCLEROSIS
     Route: 030
     Dates: start: 2000, end: 2003
  3. AVONEX [Suspect]
     Indication: MULTIPLE SCLEROSIS
     Route: 030
     Dates: start: 2003, end: 201204
  4. AVONEX [Suspect]
     Indication: MULTIPLE SCLEROSIS
     Route: 030
     Dates: start: 201206, end: 20120718
  5. AVONEX [Suspect]
     Indication: MULTIPLE SCLEROSIS
     Route: 030
     Dates: start: 20120718
  6. TYLENOL [Concomitant]
     Indication: PREMEDICATION

REACTIONS (7)
  - Increased tendency to bruise [Unknown]
  - Injection site bruising [Not Recovered/Not Resolved]
  - Muscle twitching [Recovered/Resolved]
  - Injection site discomfort [Unknown]
  - Depression [Recovered/Resolved]
  - Injection site pain [Recovered/Resolved]
  - Influenza like illness [Recovered/Resolved]
